FAERS Safety Report 24397674 (Version 1)
Quarter: 2024Q4

REPORT INFORMATION
  Report Type: Spontaneous
  Country: CN (occurrence: CN)
  Receive Date: 20241004
  Receipt Date: 20241004
  Transmission Date: 20250114
  Serious: Yes (Other)
  Sender: SANOFI AVENTIS
  Company Number: CN-SA-2024SA283144

PATIENT
  Age: 21 Year
  Sex: Female
  Weight: 46 kg

DRUGS (3)
  1. ZOLPIDEM TARTRATE [Suspect]
     Active Substance: ZOLPIDEM TARTRATE
     Indication: Intentional self-injury
     Dosage: 12 DF, 1X
     Route: 048
     Dates: start: 20240423, end: 20240423
  2. DEXTROSE\SODIUM CHLORIDE [Concomitant]
     Active Substance: DEXTROSE\SODIUM CHLORIDE
     Indication: Vehicle solution use
     Dosage: 500 ML
     Route: 042
     Dates: start: 20240423
  3. GLUCOSE AND SODIUM CHLORIDE, POTASSIUM CHLORIDE [Concomitant]
     Indication: Vehicle solution use
     Dosage: SODIUM CHLORIDE INJECTION 0.9%/500 ML + POTASSIUM CHLORIDE INJECTION 15 ML IV DRIP ONCE; GLUCOSE INJ

REACTIONS (6)
  - Toxicity to various agents [Recovering/Resolving]
  - Somnolence [Recovering/Resolving]
  - Heart rate increased [Recovering/Resolving]
  - Dizziness [Recovering/Resolving]
  - Asthenia [Recovering/Resolving]
  - Intentional product misuse [Unknown]

NARRATIVE: CASE EVENT DATE: 20240423
